FAERS Safety Report 9614509 (Version 1)
Quarter: 2013Q4

REPORT INFORMATION
  Report Type: Spontaneous
  Country: BE (occurrence: NL)
  Receive Date: 20131011
  Receipt Date: 20131011
  Transmission Date: 20140711
  Serious: Yes (Hospitalization)
  Sender: FDA-Public Use
  Company Number: BE-JNJFOC-20131003218

PATIENT
  Age: 46 Year
  Sex: Male

DRUGS (4)
  1. REMICADE [Suspect]
     Indication: CROHN^S DISEASE
     Route: 042
     Dates: start: 20120424, end: 20130624
  2. REMICADE [Suspect]
     Indication: CROHN^S DISEASE
     Route: 042
     Dates: start: 200805, end: 200906
  3. PREDNISONE [Suspect]
     Indication: PRODUCT USED FOR UNKNOWN INDICATION
     Route: 065
  4. 6-MERCAPTOPURINE [Concomitant]
     Route: 065
     Dates: start: 20120503, end: 20120519

REACTIONS (1)
  - Diffuse large B-cell lymphoma [Not Recovered/Not Resolved]
